FAERS Safety Report 6572709-5 (Version None)
Quarter: 2010Q1

REPORT INFORMATION
  Report Type: 
  Country: None (occurrence: None)
  Receive Date: 20100205
  Receipt Date: 20100205
  Transmission Date: 20100710
  Serious: Yes (Hospitalization)
  Sender: FDA-Public Use
  Company Number: US-PFIZER INC-2010015171

PATIENT
  Sex: Female
  Weight: 75.737 kg

DRUGS (19)
  1. IBUPROFEN [Suspect]
     Indication: OSTEOARTHRITIS
     Dosage: UNK
     Route: 048
     Dates: start: 20070804, end: 20091001
  2. NAPROXEN [Suspect]
     Indication: OSTEOARTHRITIS
     Dosage: UNK
     Route: 048
     Dates: start: 20070804, end: 20091001
  3. BLINDED *NO SUBJECT DRUG [Suspect]
     Indication: OSTEOARTHRITIS
     Dosage: UNK
     Route: 048
     Dates: start: 20070804, end: 20091001
  4. BLINDED *PLACEBO [Suspect]
     Indication: OSTEOARTHRITIS
     Dosage: UNK
     Route: 048
     Dates: start: 20070804, end: 20091001
  5. CELECOXIB [Suspect]
     Indication: OSTEOARTHRITIS
     Dosage: UNK
     Route: 048
     Dates: start: 20070804, end: 20091001
  6. IBUPROFEN [Suspect]
     Dosage: UNK
     Route: 048
     Dates: start: 20070804, end: 20091001
  7. NAPROXEN [Suspect]
     Dosage: UNK
     Route: 048
     Dates: start: 20070804, end: 20091001
  8. NEXIUM [Concomitant]
     Indication: PROPHYLAXIS
     Dosage: UNK
     Route: 048
     Dates: start: 20070804, end: 20091001
  9. METFORMIN [Concomitant]
     Dosage: UNK
     Route: 048
     Dates: start: 20010705
  10. LASIX [Concomitant]
     Dosage: UNK
     Route: 048
     Dates: start: 19930917
  11. NEURONTIN [Concomitant]
     Dosage: UNK
     Route: 048
     Dates: start: 20011219
  12. ATENOLOL [Concomitant]
     Dosage: UNK
     Route: 048
     Dates: start: 20010213
  13. MAXZIDE [Concomitant]
     Dosage: UNK
     Route: 048
     Dates: start: 20000113
  14. FOLIC ACID [Concomitant]
     Dosage: UNK
     Route: 048
     Dates: start: 19930405
  15. K-DUR [Concomitant]
     Dosage: UNK
     Route: 048
     Dates: start: 19930913
  16. METHOTREXATE [Concomitant]
     Dosage: UNK
     Route: 048
     Dates: start: 19920301
  17. ETANERCEPT [Concomitant]
     Dosage: UNK
     Route: 048
     Dates: start: 20020101
  18. PRAVASTATIN [Concomitant]
     Dosage: UNK
     Route: 048
     Dates: start: 20071015
  19. FERROUS SULFATE TAB [Concomitant]
     Dosage: UNK
     Route: 048
     Dates: start: 20080714

REACTIONS (1)
  - CARDIOMYOPATHY [None]
